FAERS Safety Report 18337128 (Version 3)
Quarter: 2020Q4

REPORT INFORMATION
  Report Type: Other
  Country: JP (occurrence: JP)
  Receive Date: 20201001
  Receipt Date: 20201104
  Transmission Date: 20210113
  Serious: Yes (Hospitalization, Other)
  Sender: FDA-Public Use
  Company Number: JP-ROCHE-2686804

PATIENT
  Age: 60 Year
  Sex: Female
  Weight: 80 kg

DRUGS (19)
  1. AZUNOL [Concomitant]
     Indication: ANGULAR CHEILITIS
     Route: 061
  2. STIBRON [Concomitant]
     Indication: ANGULAR CHEILITIS
     Route: 061
  3. PITAVASTATIN. [Concomitant]
     Active Substance: PITAVASTATIN CALCIUM
     Indication: DYSLIPIDAEMIA
     Route: 048
  4. ATEZOLIZUMAB. [Suspect]
     Active Substance: ATEZOLIZUMAB
     Indication: NON-SMALL CELL LUNG CANCER
     Route: 041
     Dates: start: 20200721
  5. NEXIUM [Concomitant]
     Active Substance: ESOMEPRAZOLE MAGNESIUM
  6. HIRUDOID [Concomitant]
     Active Substance: GLYCOSAMINOGLYCANS
     Route: 003
  7. CARBOPLATIN. [Suspect]
     Active Substance: CARBOPLATIN
     Dosage: DOSE INTERVAL UNCERTAINTY
     Route: 041
     Dates: start: 20200903
  8. PACLITAXEL. [Suspect]
     Active Substance: PACLITAXEL
     Indication: NON-SMALL CELL LUNG CANCER
     Dosage: DOSE INTERVAL UNCERTAINTY
     Route: 041
     Dates: start: 20200721
  9. LYRICA [Concomitant]
     Active Substance: PREGABALIN
     Route: 048
  10. MAGNESIUM OXIDE. [Concomitant]
     Active Substance: MAGNESIUM OXIDE
     Indication: CONSTIPATION
     Route: 048
  11. SYMBICORT [Concomitant]
     Active Substance: BUDESONIDE\FORMOTEROL FUMARATE DIHYDRATE
     Indication: ASTHMA
     Route: 055
  12. BEVACIZUMAB. [Suspect]
     Active Substance: BEVACIZUMAB
     Indication: NON-SMALL CELL LUNG CANCER
     Dosage: DOSE INTERVAL UNCERTAINTY
     Route: 041
     Dates: start: 20200721
  13. CARBOPLATIN. [Suspect]
     Active Substance: CARBOPLATIN
     Indication: NON-SMALL CELL LUNG CANCER
     Dosage: DOSE INTERVAL UNCERTAINTY
     Route: 041
     Dates: start: 20200721
  14. KETOPROFEN. [Concomitant]
     Active Substance: KETOPROFEN
     Indication: BACK PAIN
     Dosage: DOSAGE IS UNCERTAIN.
     Route: 061
  15. ATEZOLIZUMAB. [Suspect]
     Active Substance: ATEZOLIZUMAB
     Route: 041
     Dates: start: 20200903
  16. BEVACIZUMAB. [Suspect]
     Active Substance: BEVACIZUMAB
     Dosage: DOSE INTERVAL UNCERTAINTY
     Route: 041
     Dates: start: 20200903
  17. PACLITAXEL. [Suspect]
     Active Substance: PACLITAXEL
     Dosage: DOSE INTERVAL UNCERTAINTY
     Route: 041
     Dates: start: 20200903
  18. NADIFLOXACIN [Concomitant]
     Active Substance: NADIFLOXACIN
     Indication: DRY SKIN
     Dosage: DOSAGE IS UNCERTAIN.
     Route: 003
  19. PRANLUKAST [Concomitant]
     Active Substance: PRANLUKAST
     Indication: ASTHMA
     Route: 048

REACTIONS (3)
  - Staphylococcal bacteraemia [Unknown]
  - Vascular device infection [Recovered/Resolved]
  - Thrombophlebitis septic [Recovered/Resolved]

NARRATIVE: CASE EVENT DATE: 202009
